FAERS Safety Report 9124741 (Version 3)
Quarter: 2014Q1

REPORT INFORMATION
  Report Type: Spontaneous
  Country: US (occurrence: US)
  Receive Date: 20130116
  Receipt Date: 20140206
  Transmission Date: 20141002
  Serious: Yes (Disabling, Other)
  Sender: FDA-Public Use
  Company Number: US-BAYER-2013-004932

PATIENT
  Sex: Female

DRUGS (1)
  1. CIPRO [Suspect]

REACTIONS (3)
  - Toxicity to various agents [None]
  - Walking disability [None]
  - Adverse event [None]
